FAERS Safety Report 21524428 (Version 1)
Quarter: 2022Q4

REPORT INFORMATION
  Report Type: Report from Study
  Country: MX (occurrence: MX)
  Receive Date: 20221029
  Receipt Date: 20221029
  Transmission Date: 20230113
  Serious: Yes (Other)
  Sender: FDA-Public Use
  Company Number: MX-NOVARTISPH-NVSC2022MX243834

PATIENT
  Age: 71 Year
  Sex: Female

DRUGS (1)
  1. FEMARA [Suspect]
     Active Substance: LETROZOLE
     Indication: Breast cancer
     Dosage: 2.5 MG, QD (1) PILL
     Route: 048
     Dates: start: 2014, end: 2019

REACTIONS (6)
  - Condition aggravated [Not Recovered/Not Resolved]
  - Hip fracture [Recovering/Resolving]
  - Bone cancer [Not Recovered/Not Resolved]
  - Second primary malignancy [Unknown]
  - Weight decreased [Not Recovered/Not Resolved]
  - Medication error [Unknown]

NARRATIVE: CASE EVENT DATE: 20211201
